FAERS Safety Report 4698552-X (Version None)
Quarter: 2005Q2

REPORT INFORMATION
  Report Type: 
  Country: None (occurrence: None)
  Receive Date: 20050622
  Receipt Date: 20050614
  Transmission Date: 20051028
  Serious: Yes (Other)
  Sender: FDA-Public Use
  Company Number: 2005-06-0910

PATIENT
  Age: 24 Year
  Sex: Female

DRUGS (6)
  1. PEG-INTERFERON INJECTABLE [Suspect]
     Indication: HEPATITIS C
  2. RIBAVIRIN [Suspect]
     Indication: HEPATITIS C
     Dosage: ORAL
     Route: 048
  3. VENLAFAXINE HCL [Concomitant]
  4. LEVOTHYROXINE [Concomitant]
  5. IRON [Concomitant]
  6. ETHINYL ESTRADIOL/NORGESTIMATE [Concomitant]

REACTIONS (10)
  - CORNEAL CYST [None]
  - CORNEAL EPITHELIUM DISORDER [None]
  - EYE PAIN [None]
  - KERATOCONJUNCTIVITIS SICCA [None]
  - MEIBOMIANITIS [None]
  - OCULAR HYPERAEMIA [None]
  - OPHTHALMOLOGICAL EXAMINATION ABNORMAL [None]
  - REFRACTION DISORDER [None]
  - VISION BLURRED [None]
  - VISUAL DISTURBANCE [None]
